FAERS Safety Report 6172589-6 (Version None)
Quarter: 2009Q2

REPORT INFORMATION
  Report Type: 
  Country: None (occurrence: None)
  Receive Date: 20090428
  Receipt Date: 20090414
  Transmission Date: 20091009
  Serious: Yes (Death, Life-Threatening, Hospitalization)
  Sender: FDA-Public Use
  Company Number: 2009000924

PATIENT
  Age: 62 Year
  Sex: Male
  Weight: 84.4144 kg

DRUGS (10)
  1. ERLOTINIB (ERLOTINIB) (TABLET) (ERLOTINIB) [Suspect]
     Indication: NON-SMALL CELL LUNG CANCER
     Dosage: (150 MG), ORAL
     Route: 048
     Dates: start: 20090302, end: 20090319
  2. ARQ 197/PLACEBO [Suspect]
     Indication: NON-SMALL CELL LUNG CANCER
     Dosage: (360 MG, BID), ORAL
     Route: 048
     Dates: start: 20090302, end: 20090319
  3. GLIPIZIDE [Concomitant]
  4. VITAMIN B12 [Concomitant]
  5. MULTIPURPOSE VITAMIN (VITAMINS) [Concomitant]
  6. ADVIL [Concomitant]
  7. SENOKOT [Concomitant]
  8. VICODIN [Concomitant]
  9. GOLD BOND CREAM [Concomitant]
  10. NEURONTIN [Concomitant]

REACTIONS (4)
  - ENTEROBACTER INFECTION [None]
  - FUNGAL INFECTION [None]
  - PNEUMONIA [None]
  - PULMONARY EMBOLISM [None]
